FAERS Safety Report 23134102 (Version 2)
Quarter: 2024Q2

REPORT INFORMATION
  Report Type: Spontaneous
  Country: JP (occurrence: JP)
  Receive Date: 20231101
  Receipt Date: 20240530
  Transmission Date: 20240716
  Serious: Yes (Other)
  Sender: FDA-Public Use
  Company Number: JP-AMGEN-JPNSP2022204956

PATIENT
  Age: 67 Year
  Sex: Male

DRUGS (18)
  1. LUMAKRAS [Suspect]
     Active Substance: SOTORASIB
     Indication: Non-small cell lung cancer stage IV
     Dosage: 960 MILLIGRAM, QD
     Route: 048
     Dates: start: 202205
  2. LUMAKRAS [Suspect]
     Active Substance: SOTORASIB
     Indication: K-ras gene mutation
  3. BEVACIZUMAB [Suspect]
     Active Substance: BEVACIZUMAB
     Indication: Non-small cell lung cancer stage IV
     Dosage: UNK
     Route: 065
     Dates: start: 201812
  4. BEVACIZUMAB [Suspect]
     Active Substance: BEVACIZUMAB
     Indication: K-ras gene mutation
  5. CARBOPLATIN [Concomitant]
     Active Substance: CARBOPLATIN
     Indication: Non-small cell lung cancer stage IV
     Dosage: UNK
     Dates: start: 201812
  6. CARBOPLATIN [Concomitant]
     Active Substance: CARBOPLATIN
     Indication: K-ras gene mutation
  7. PACLITAXEL [Concomitant]
     Active Substance: PACLITAXEL
     Indication: Non-small cell lung cancer stage IV
     Dosage: UNK
     Dates: start: 201812
  8. PACLITAXEL [Concomitant]
     Active Substance: PACLITAXEL
     Indication: K-ras gene mutation
  9. DOCETAXEL [Concomitant]
     Active Substance: DOCETAXEL\DOCETAXEL ANHYDROUS
     Indication: Non-small cell lung cancer stage IV
     Dosage: UNK
     Dates: start: 201910
  10. DOCETAXEL [Concomitant]
     Active Substance: DOCETAXEL\DOCETAXEL ANHYDROUS
     Indication: K-ras gene mutation
  11. NIVOLUMAB [Concomitant]
     Active Substance: NIVOLUMAB
     Indication: Non-small cell lung cancer stage IV
     Dosage: UNK
     Dates: start: 201910
  12. NIVOLUMAB [Concomitant]
     Active Substance: NIVOLUMAB
     Indication: K-ras gene mutation
  13. PEMETREXED [Concomitant]
     Active Substance: PEMETREXED
     Indication: Non-small cell lung cancer stage IV
     Dosage: UNK
     Dates: start: 202009
  14. PEMETREXED [Concomitant]
     Active Substance: PEMETREXED
     Indication: K-ras gene mutation
  15. AMRUBICIN [Concomitant]
     Active Substance: AMRUBICIN
     Indication: Non-small cell lung cancer stage IV
     Dosage: UNK
     Dates: start: 202109
  16. AMRUBICIN [Concomitant]
     Active Substance: AMRUBICIN
     Indication: K-ras gene mutation
  17. ATEZOLIZUMAB [Concomitant]
     Active Substance: ATEZOLIZUMAB
     Indication: Non-small cell lung cancer stage IV
     Dosage: UNK
  18. ATEZOLIZUMAB [Concomitant]
     Active Substance: ATEZOLIZUMAB
     Indication: K-ras gene mutation

REACTIONS (7)
  - Non-small cell lung cancer [Unknown]
  - Nephritis [Unknown]
  - Infection [Unknown]
  - Pneumonia [Unknown]
  - Liver disorder [Unknown]
  - Haemoglobin decreased [Recovered/Resolved]
  - Blood creatinine increased [Unknown]

NARRATIVE: CASE EVENT DATE: 20200101
